FAERS Safety Report 7574228-6 (Version None)
Quarter: 2011Q2

REPORT INFORMATION
  Report Type: 
  Country: None (occurrence: None)
  Receive Date: 20110627
  Receipt Date: 20110617
  Transmission Date: 20111010
  Serious: Yes (Other)
  Sender: FDA-Public Use
  Company Number: DE-ROCHE-781347

PATIENT
  Sex: Female
  Weight: 50 kg

DRUGS (5)
  1. IBANDRONATE SODIUM [Suspect]
     Route: 042
  2. BORTEZOMIB [Concomitant]
     Indication: MULTIPLE MYELOMA
  3. IBANDRONATE SODIUM [Suspect]
     Indication: OSTEOLYSIS
     Route: 042
     Dates: start: 20100801
  4. CYCLOPHOSPHAMIDE [Concomitant]
     Indication: MULTIPLE MYELOMA
  5. DEXAMETHASONE [Concomitant]
     Indication: MULTIPLE MYELOMA

REACTIONS (8)
  - PARAPLEGIA [None]
  - URINARY INCONTINENCE [None]
  - HEADACHE [None]
  - CHILLS [None]
  - PAIN IN EXTREMITY [None]
  - FAECAL INCONTINENCE [None]
  - GAIT DISTURBANCE [None]
  - POLYNEUROPATHY [None]
